FAERS Safety Report 5076957-5 (Version None)
Quarter: 2006Q3

REPORT INFORMATION
  Report Type: 
  Country: None (occurrence: None)
  Receive Date: 20060810
  Receipt Date: 20060628
  Transmission Date: 20061208
  Serious: Yes (Death, Congenital Anomaly)
  Sender: FDA-Public Use
  Company Number: US-GLAXOSMITHKLINE-A0610828A

PATIENT
  Sex: Female
  Weight: 1 kg

DRUGS (8)
  1. ZIDOVUDINE [Suspect]
     Indication: HIV INFECTION
  2. TRUVADA [Concomitant]
     Dates: start: 20050101
  3. VIRAMUNE [Concomitant]
     Dates: start: 20011107
  4. WELLBUTRIN [Concomitant]
     Dosage: 300MG PER DAY
  5. SEROQUEL [Concomitant]
     Dosage: 100MG PER DAY
  6. AMOXICILLIN [Concomitant]
  7. COCAINE [Concomitant]
  8. TOBACCO [Concomitant]

REACTIONS (16)
  - CAESAREAN SECTION [None]
  - CHROMOSOME ABNORMALITY [None]
  - CONGENITAL ANOMALY [None]
  - CONTUSION [None]
  - CYANOSIS [None]
  - DEPRESSED LEVEL OF CONSCIOUSNESS [None]
  - DRUG EXPOSURE DURING PREGNANCY [None]
  - HYDROPS FOETALIS [None]
  - METABOLIC ACIDOSIS [None]
  - MICROGNATHIA [None]
  - PETECHIAE [None]
  - PREMATURE BABY [None]
  - PULMONARY HYPOPLASIA [None]
  - RESPIRATORY DISTRESS [None]
  - SMALL FOR DATES BABY [None]
  - THROMBOCYTOPENIA [None]
